FAERS Safety Report 6551900-8 (Version None)
Quarter: 2010Q1

REPORT INFORMATION
  Report Type: 
  Country: None (occurrence: None)
  Receive Date: 20100126
  Receipt Date: 20100114
  Transmission Date: 20100710
  Serious: Yes (Death)
  Sender: FDA-Public Use
  Company Number: IT-PFIZER INC-2010006371

PATIENT
  Age: 60 Year
  Sex: Female

DRUGS (7)
  1. SUTENT [Suspect]
     Indication: RENAL CELL CARCINOMA
     Dosage: 37.5 MG, 1X/DAY
     Route: 048
     Dates: start: 20091218, end: 20100104
  2. LISINOPRIL AND HYDROCHLOROTHIAZIDE [Concomitant]
     Dosage: 20 MG, UNK
     Route: 048
     Dates: start: 20091203, end: 20100105
  3. LANSOPRAZOLE [Concomitant]
     Dosage: 30 MG
     Route: 048
     Dates: start: 20091203, end: 20100105
  4. LANSOPRAZOLE [Concomitant]
     Dosage: 30 MG,
     Route: 048
     Dates: start: 20091203, end: 20100105
  5. ALLOPURINOL [Concomitant]
     Dosage: 300 MG
     Route: 048
     Dates: start: 20091203, end: 20100104
  6. DEXAMETHASONE PHOSPHATE [Concomitant]
     Dosage: 8 MG
     Dates: start: 20091203, end: 20100105
  7. FRAGMIN [Concomitant]
     Dosage: 5000 INTERNATIONAL UNITS, IN THOUSANDS
     Route: 058
     Dates: start: 20091203, end: 20100104

REACTIONS (5)
  - HAEMATURIA [None]
  - IMMUNODEFICIENCY [None]
  - LEUKOPENIA [None]
  - PLATELET COUNT DECREASED [None]
  - STOMATITIS [None]
